FAERS Safety Report 7815288-4 (Version None)
Quarter: 2011Q4

REPORT INFORMATION
  Report Type: 
  Country: None (occurrence: None)
  Receive Date: 20111014
  Receipt Date: 20110930
  Transmission Date: 20120403
  Serious: Yes (Death, Other)
  Sender: FDA-Public Use
  Company Number: CA-PURDUE-CAN-2011-0002133

PATIENT
  Sex: Female

DRUGS (2)
  1. ASTHMA PUFFER [Suspect]
     Indication: ASTHMA
     Dosage: UNK
     Route: 065
  2. BUPRENORPHINE [Suspect]
     Indication: BACK PAIN
     Dosage: UNK
     Route: 062

REACTIONS (4)
  - ASTHMA [None]
  - VENTRICULAR FIBRILLATION [None]
  - SUDDEN DEATH [None]
  - ANAPHYLACTIC REACTION [None]
